FAERS Safety Report 9648665 (Version 2)
Quarter: 2014Q4

REPORT INFORMATION
  Report Type: Report from Study
  Country: VE (occurrence: VE)
  Receive Date: 20131028
  Receipt Date: 20141016
  Transmission Date: 20150529
  Serious: Yes (Other)
  Sender: FDA-Public Use
  Company Number: VE-ABBVIE-13P-178-1161203-00

PATIENT
  Age: 53 Year
  Sex: Female
  Weight: 62 kg

DRUGS (2)
  1. ZEMPLAR [Suspect]
     Active Substance: PARICALCITOL
     Indication: CHRONIC KIDNEY DISEASE
     Route: 042
     Dates: start: 20130607, end: 201310
  2. ZEMPLAR [Suspect]
     Active Substance: PARICALCITOL
     Route: 065
     Dates: start: 201311

REACTIONS (2)
  - Thyroid adenoma [Recovered/Resolved]
  - Hypocalcaemia [Recovering/Resolving]

NARRATIVE: CASE EVENT DATE: 20131021
